FAERS Safety Report 14780591 (Version 2)
Quarter: 2019Q1

REPORT INFORMATION
  Report Type: Report from Study
  Country: US (occurrence: US)
  Receive Date: 20180419
  Receipt Date: 20190212
  Transmission Date: 20190417
  Serious: Yes (Other)
  Sender: FDA-Public Use
  Company Number: PHEH2018US015140

PATIENT
  Age: 47 Year
  Sex: Male

DRUGS (1)
  1. GILENYA [Suspect]
     Active Substance: FINGOLIMOD HYDROCHLORIDE
     Indication: MULTIPLE SCLEROSIS
     Dosage: 0.5 MG, QD
     Route: 048
     Dates: start: 20170803

REACTIONS (4)
  - Liver function test increased [Unknown]
  - Fatigue [Unknown]
  - Seizure [Unknown]
  - Dehydration [Unknown]

NARRATIVE: CASE EVENT DATE: 20181231
